FAERS Safety Report 8991100 (Version 1)
Quarter: 2013Q1

REPORT INFORMATION
  Report Type: Spontaneous
  Country: US (occurrence: None)
  Receive Date: 20121227
  Receipt Date: 20121227
  Transmission Date: 20140127
  Serious: Yes (Hospitalization)
  Sender: FDA-Public Use
  Company Number: None

PATIENT
  Age: 51 Year
  Sex: Female
  Weight: 68.49 kg

DRUGS (3)
  1. GEMCITABINE [Suspect]
     Route: 042
     Dates: start: 20121005
  2. CISPLATIN [Suspect]
     Route: 042
     Dates: start: 20121005
  3. NEULASTA [Suspect]
     Dosage: 24-48 HRS POST CHEMO
     Dates: start: 20121006

REACTIONS (2)
  - Failure to thrive [None]
  - Fatigue [None]
